FAERS Safety Report 12707126 (Version 2)
Quarter: 2017Q2

REPORT INFORMATION
  Report Type: Spontaneous
  Country: DE (occurrence: DE)
  Receive Date: 20160901
  Receipt Date: 20170524
  Transmission Date: 20170830
  Serious: Yes (Hospitalization)
  Sender: FDA-Public Use
  Company Number: DE-DRREDDYS-GER/GER/16/0082680

PATIENT
  Age: 26 Year
  Sex: Male
  Weight: 90 kg

DRUGS (10)
  1. IBUBETA 400 [Suspect]
     Active Substance: IBUPROFEN
     Route: 048
     Dates: start: 20160819, end: 20160819
  2. IBUPROFEN AL 600 [Suspect]
     Active Substance: IBUPROFEN
     Indication: PRODUCT USED FOR UNKNOWN INDICATION
     Route: 048
  3. VENLAFAXIN 37,5 RETARD 1A PHARMA [Suspect]
     Active Substance: VENLAFAXINE HYDROCHLORIDE
     Indication: PRODUCT USED FOR UNKNOWN INDICATION
     Route: 048
  4. L THYROXIN HENNING 100 [Suspect]
     Active Substance: LEVOTHYROXINE SODIUM
     Route: 048
     Dates: start: 20160819, end: 20160819
  5. CITALOPRAM AL 10 [Suspect]
     Active Substance: CITALOPRAM HYDROBROMIDE
     Indication: PRODUCT USED FOR UNKNOWN INDICATION
     Route: 048
  6. IBUPROFEN AL 600 [Suspect]
     Active Substance: IBUPROFEN
     Route: 048
     Dates: start: 20160819, end: 20160819
  7. L THYROXIN HENNING 100 [Suspect]
     Active Substance: LEVOTHYROXINE SODIUM
     Indication: PRODUCT USED FOR UNKNOWN INDICATION
     Route: 048
  8. IBUBETA 400 [Suspect]
     Active Substance: IBUPROFEN
     Indication: PRODUCT USED FOR UNKNOWN INDICATION
     Route: 048
  9. VENLAFAXIN 37,5 RETARD 1A PHARMA [Suspect]
     Active Substance: VENLAFAXINE HYDROCHLORIDE
     Route: 048
     Dates: start: 20160819, end: 20160819
  10. CITALOPRAM AL 10 [Suspect]
     Active Substance: CITALOPRAM HYDROBROMIDE
     Route: 048
     Dates: start: 20160819, end: 20160819

REACTIONS (5)
  - Sinus tachycardia [Recovered/Resolved]
  - Suicide attempt [Recovered/Resolved]
  - Aggression [Recovered/Resolved]
  - Systolic hypertension [Recovered/Resolved]
  - Intentional overdose [Recovered/Resolved]

NARRATIVE: CASE EVENT DATE: 20160819
